FAERS Safety Report 9164380 (Version 2)
Quarter: 2013Q1

REPORT INFORMATION
  Report Type: Spontaneous
  Country: BR (occurrence: BR)
  Receive Date: 20130315
  Receipt Date: 20130319
  Transmission Date: 20140127
  Serious: Yes (Other)
  Sender: FDA-Public Use
  Company Number: BR-AMGEN-BRASP2013017521

PATIENT
  Age: 29 Year
  Sex: Female
  Weight: 84 kg

DRUGS (2)
  1. ENBREL [Suspect]
     Indication: RHEUMATOID ARTHRITIS
     Dosage: 50 MG, ONCE A WEEK
     Route: 058
     Dates: start: 20130102
  2. METHOTREXATE [Concomitant]
     Dosage: UNK, 1 TABLET EVERY SATURDAY

REACTIONS (9)
  - Hallucination, visual [Unknown]
  - Agitation [Unknown]
  - Vision blurred [Unknown]
  - Ocular hyperaemia [Unknown]
  - Tremor [Unknown]
  - Chills [Unknown]
  - Feeling cold [Unknown]
  - Fear [Unknown]
  - Headache [Not Recovered/Not Resolved]
